FAERS Safety Report 8257173-2 (Version None)
Quarter: 2012Q1

REPORT INFORMATION
  Report Type: 
  Country: None (occurrence: None)
  Receive Date: 20120322
  Receipt Date: 20120219
  Transmission Date: 20120608
  Serious: Yes (Hospitalization)
  Sender: FDA-Public Use
  Company Number: UTC-015781

PATIENT
  Age: 68 Year
  Sex: Female
  Weight: 57.72 kg

DRUGS (2)
  1. ADCIRCA [Concomitant]
  2. TYVASO [Suspect]
     Indication: PULMONARY ARTERIAL HYPERTENSION
     Dosage: 18-54 MICROGRAMS (4 IN 1 D), INHALATION
     Route: 055
     Dates: start: 20100819

REACTIONS (3)
  - ELECTROLYTE IMBALANCE [None]
  - ABDOMINAL PAIN [None]
  - LUNG DISORDER [None]
